FAERS Safety Report 6795895-0 (Version None)
Quarter: 2010Q2

REPORT INFORMATION
  Report Type: 
  Country: None (occurrence: None)
  Receive Date: 20100625
  Receipt Date: 20100618
  Transmission Date: 20101027
  Serious: Yes (Other)
  Sender: FDA-Public Use
  Company Number: A0866966A

PATIENT
  Sex: Female
  Weight: 43 kg

DRUGS (2)
  1. AVAMYS [Suspect]
     Indication: COUGH
     Dosage: 2PUFF PER DAY
     Route: 045
     Dates: start: 20100611, end: 20100613
  2. ALLEGRA D 24 HOUR [Concomitant]
     Dosage: 1TAB TWICE PER DAY
     Route: 048
     Dates: start: 20100611, end: 20100613

REACTIONS (4)
  - CELLULITIS [None]
  - ERYTHEMA [None]
  - HYPERAEMIA [None]
  - OEDEMA [None]
